FAERS Safety Report 10073132 (Version 2)
Quarter: 2014Q2

REPORT INFORMATION
  Report Type: Report from Study
  Country: GB (occurrence: GB)
  Receive Date: 20140411
  Receipt Date: 20140505
  Transmission Date: 20141212
  Serious: Yes (Death, Hospitalization)
  Sender: FDA-Public Use
  Company Number: GB-EXELIXIS-XL18414004149

PATIENT
  Age: 64 Year
  Sex: Male

DRUGS (3)
  1. XL184 [Suspect]
     Indication: PROSTATE CANCER
     Dosage: 60 MG, QD
     Route: 048
     Dates: start: 20130502
  2. XL184 [Suspect]
     Dosage: 40 MG, QD
     Route: 048
  3. XL184 [Suspect]
     Indication: PROSTATE CANCER
     Dosage: 5 MG, BID
     Route: 048
     Dates: start: 20130502

REACTIONS (3)
  - Death [Fatal]
  - Anaemia [Not Recovered/Not Resolved]
  - Pneumonia [Unknown]
